FAERS Safety Report 10606826 (Version 1)
Quarter: 2014Q4

REPORT INFORMATION
  Report Type: Spontaneous
  Country: US (occurrence: None)
  Receive Date: 20141124
  Receipt Date: 20141124
  Transmission Date: 20150529
  Serious: Yes (Hospitalization)
  Sender: FDA-Public Use
  Company Number: None

PATIENT
  Age: 66 Year
  Sex: Male
  Weight: 78.1 kg

DRUGS (1)
  1. COUMADIN [Suspect]
     Active Substance: WARFARIN SODIUM
     Indication: HEART VALVE REPLACEMENT
     Dosage: CHRONIC
     Route: 048

REACTIONS (4)
  - International normalised ratio increased [None]
  - Coagulopathy [None]
  - Anticoagulation drug level below therapeutic [None]
  - Incision site infection [None]

NARRATIVE: CASE EVENT DATE: 20140807
